FAERS Safety Report 4776730-9 (Version None)
Quarter: 2005Q3

REPORT INFORMATION
  Report Type: 
  Country: None (occurrence: None)
  Receive Date: 20050914
  Receipt Date: 20040913
  Transmission Date: 20060218
  Serious: Yes (Other)
  Sender: FDA-Public Use
  Company Number: 163-20785-04090314

PATIENT
  Age: 51 Year
  Sex: Male
  Weight: 90 kg

DRUGS (8)
  1. THALOMID [Suspect]
     Indication: CHRONIC LYMPHOCYTIC LEUKAEMIA
     Dosage: 300 MG, DAILY, ORAL
     Route: 048
     Dates: end: 20040901
  2. FLUDARABINE [Suspect]
     Indication: CHRONIC LYMPHOCYTIC LEUKAEMIA
     Dosage: 25MG/M2, INTRAVENOUS
     Route: 042
     Dates: end: 20040813
  3. MULTIPLE VITAMIN (MULTIPLE VITAMINS) [Concomitant]
  4. COLACE (DOCUSATE SODIUM) [Concomitant]
  5. SENOKOT S (SENOKOT-S) [Concomitant]
  6. COUMADIN [Concomitant]
  7. ACYCLOVIR [Concomitant]
  8. BACTRIM DS [Concomitant]

REACTIONS (1)
  - UPPER RESPIRATORY TRACT INFECTION [None]
